FAERS Safety Report 17868404 (Version 2)
Quarter: 2020Q3

REPORT INFORMATION
  Report Type: Report from Study
  Country: None (occurrence: RO)
  Receive Date: 20200606
  Receipt Date: 20200707
  Transmission Date: 20201103
  Serious: Yes (Death, Hospitalization)
  Sender: FDA-Public Use
  Company Number: RO-ABBVIE-20K-135-3433342-00

PATIENT
  Age: 60 Year
  Sex: Male

DRUGS (1)
  1. DUODOPA [Suspect]
     Active Substance: CARBIDOPA\LEVODOPA
     Indication: PARKINSON^S DISEASE
     Dosage: DM=12.50??DC=4.50??ED=2.50??NRED=2;??DMN=0.00??DCN=0.00??EDN=0.00??NREDN=0
     Route: 050
     Dates: start: 20181129, end: 20200604

REACTIONS (2)
  - Road traffic accident [Unknown]
  - Multiple injuries [Fatal]

NARRATIVE: CASE EVENT DATE: 20200603
